FAERS Safety Report 18225818 (Version 3)
Quarter: 2020Q3

REPORT INFORMATION
  Report Type: Spontaneous
  Country: GB (occurrence: GB)
  Receive Date: 20200903
  Receipt Date: 20200924
  Transmission Date: 20201103
  Serious: No
  Sender: FDA-Public Use
  Company Number: GB-AUROBINDO-AUR-APL-2020-045856

PATIENT
  Sex: Female

DRUGS (2)
  1. LOSARTAN FILM?COATED TABLETS [Suspect]
     Active Substance: LOSARTAN
     Indication: HYPERTENSION
     Dosage: UNK
     Route: 065
  2. LOSARTAN FILM?COATED TABLETS [Suspect]
     Active Substance: LOSARTAN
     Dosage: UNK
     Route: 048

REACTIONS (7)
  - Product substitution issue [Unknown]
  - Blood pressure increased [Unknown]
  - Malaise [Unknown]
  - Headache [Unknown]
  - Drug ineffective [Unknown]
  - Illness [Unknown]
  - Drug intolerance [Unknown]
